FAERS Safety Report 4719361-9 (Version None)
Quarter: 2005Q3

REPORT INFORMATION
  Report Type: 
  Country: None (occurrence: None)
  Receive Date: 20050721
  Receipt Date: 20050711
  Transmission Date: 20060218
  Serious: Yes (Hospitalization, Other)
  Sender: FDA-Public Use
  Company Number: US-JNJFOC-20050701954

PATIENT
  Sex: Female
  Weight: 91.4 kg

DRUGS (21)
  1. REMICADE [Suspect]
     Indication: CROHN'S DISEASE
     Route: 042
  2. CALAZOL [Concomitant]
  3. DONNATAL EXTEND TAB [Concomitant]
  4. DONNATAL EXTEND TAB [Concomitant]
  5. DONNATAL EXTEND TAB [Concomitant]
  6. DONNATAL EXTEND TAB [Concomitant]
  7. K-DUR 10 [Concomitant]
  8. PAXIL [Concomitant]
  9. FUROSIMIDE [Concomitant]
  10. NORVASC [Concomitant]
  11. COZAAR [Concomitant]
  12. PROTONIX [Concomitant]
  13. LIPITOR [Concomitant]
  14. SINGULAIR [Concomitant]
  15. LORATADINE [Concomitant]
  16. AZOPT [Concomitant]
  17. LUMIGAN [Concomitant]
  18. CARTOLOL HYDROMINE [Concomitant]
  19. IMURAN [Concomitant]
  20. VITAMINS [Concomitant]
  21. IRON [Concomitant]

REACTIONS (1)
  - LISTERIA SEPSIS [None]
